FAERS Safety Report 11266228 (Version 1)
Quarter: 2015Q2

REPORT INFORMATION
  Report Type: Spontaneous
  Country: US (occurrence: None)
  Receive Date: 20150625
  Receipt Date: 20150625
  Transmission Date: 20150821
  Serious: Yes (Other)
  Sender: FDA-Public Use
  Company Number: PHEH2015US006626

PATIENT
  Sex: Female

DRUGS (2)
  1. EVEROLIMUS [Suspect]
     Active Substance: EVEROLIMUS
     Indication: RENAL CANCER
  2. SUNITINIB (SUNITINIB) [Suspect]
     Active Substance: SUNITINIB
     Indication: RENAL CANCER

REACTIONS (3)
  - Malignant neoplasm progression [None]
  - Metastases to bone [None]
  - Metastases to liver [None]
